FAERS Safety Report 15245891 (Version 9)
Quarter: 2019Q1

REPORT INFORMATION
  Report Type: Spontaneous
  Country: BE (occurrence: BE)
  Receive Date: 20180806
  Receipt Date: 20190118
  Transmission Date: 20190417
  Serious: Yes (Life-Threatening, Hospitalization, Other)
  Sender: FDA-Public Use
  Company Number: BE-PFIZER INC-2018315077

PATIENT
  Age: 63 Year
  Sex: Male
  Weight: 52 kg

DRUGS (9)
  1. PROGRAFT [Concomitant]
     Active Substance: TACROLIMUS
     Dosage: 1 MG, QD
     Route: 048
  2. VITAMIN B6 [Concomitant]
     Active Substance: PYRIDOXINE HYDROCHLORIDE
     Dosage: 100 MG, QD
     Route: 042
  3. PANTOMED (PANTOPRAZOLE SODIUM SESQUIHYDRATE) [Suspect]
     Active Substance: PANTOPRAZOLE SODIUM
     Indication: OESOPHAGITIS
     Dosage: 8 MG, Q1HR
     Route: 042
     Dates: start: 20180625, end: 20180723
  4. ZOVIRAX [Interacting]
     Active Substance: ACYCLOVIR
     Indication: PROPHYLAXIS
     Dosage: 400 MG, QD
     Route: 048
     Dates: end: 20180723
  5. URSOFALK [Concomitant]
     Active Substance: URSODIOL
     Dosage: 250 MG, BID
     Route: 048
  6. PARACETAMOL [Concomitant]
     Active Substance: ACETAMINOPHEN
     Dosage: 1 G, TID
     Route: 048
  7. DIFLUCAN [Interacting]
     Active Substance: FLUCONAZOLE
     Indication: PROPHYLAXIS
     Dosage: 200 MG, QD
     Route: 048
  8. OLIMEL [Concomitant]
     Active Substance: AMINO ACIDS\DEXTROSE\SOYBEAN OIL
     Dosage: UNK
     Route: 051
  9. VITAMIN B1 [Concomitant]
     Active Substance: THIAMINE HYDROCHLORIDE
     Dosage: 250 MG, QD
     Route: 042

REACTIONS (7)
  - Coma [Recovered/Resolved with Sequelae]
  - Hepatic encephalopathy [Unknown]
  - Encephalopathy [Recovered/Resolved with Sequelae]
  - Off label use [Recovered/Resolved]
  - Somnolence [Recovered/Resolved with Sequelae]
  - Drug interaction [Recovered/Resolved with Sequelae]
  - Neurodegenerative disorder [Recovered/Resolved with Sequelae]

NARRATIVE: CASE EVENT DATE: 20180625
